FAERS Safety Report 10084244 (Version 1)
Quarter: 2014Q2

REPORT INFORMATION
  Report Type: Report from Study
  Country: CO (occurrence: CO)
  Receive Date: 20140417
  Receipt Date: 20140417
  Transmission Date: 20141212
  Serious: Yes (Hospitalization)
  Sender: FDA-Public Use
  Company Number: CO-ABBVIE-14P-036-1226779-00

PATIENT
  Age: 58 Year
  Sex: Male
  Weight: 96 kg

DRUGS (4)
  1. HUMIRA [Suspect]
     Indication: ANKYLOSING SPONDYLITIS
     Route: 058
     Dates: start: 20130117, end: 20140319
  2. GLIBENCLAMIDE [Concomitant]
     Indication: PRODUCT USED FOR UNKNOWN INDICATION
  3. METFORMINE [Concomitant]
     Indication: PRODUCT USED FOR UNKNOWN INDICATION
  4. BETAMETHASONE [Concomitant]
     Indication: PRODUCT USED FOR UNKNOWN INDICATION
     Route: 061

REACTIONS (6)
  - Skin ulcer [Recovering/Resolving]
  - Genital ulceration [Recovering/Resolving]
  - Rash [Recovering/Resolving]
  - Erythema [Recovering/Resolving]
  - Pyrexia [Recovering/Resolving]
  - Infection [Recovering/Resolving]
